FAERS Safety Report 8363224-7 (Version None)
Quarter: 2012Q2

REPORT INFORMATION
  Report Type: 
  Country: None (occurrence: None)
  Receive Date: 20120516
  Receipt Date: 20120510
  Transmission Date: 20120825
  Serious: Yes (Hospitalization)
  Sender: FDA-Public Use
  Company Number: ES-PFIZER INC-2012114182

PATIENT
  Age: 30 Year
  Sex: Male

DRUGS (6)
  1. FUROSEMIDE [Interacting]
     Dosage: 80 MG, 1X/DAY
     Route: 048
     Dates: start: 20110501, end: 20110506
  2. NORVIR [Concomitant]
     Indication: HIV INFECTION
     Dosage: 100 MG, 1X/DAY
     Route: 048
  3. FOSAMPRENAVIR CALCIUM [Concomitant]
     Indication: HIV INFECTION
     Dosage: 700 MG, 1X/DAY
     Route: 048
  4. ALDACTONE [Suspect]
     Indication: OEDEMA PERIPHERAL
     Dosage: 50 MG, 1X/DAY
     Route: 048
     Dates: start: 20110412, end: 20110417
  5. ALDACTONE [Interacting]
     Dosage: 100 MG, 1X/DAY
     Route: 048
     Dates: start: 20110418, end: 20110506
  6. FUROSEMIDE [Interacting]
     Indication: OEDEMA PERIPHERAL
     Dosage: 40 MG, 1X/DAY
     Route: 048
     Dates: start: 20110412, end: 20110430

REACTIONS (2)
  - HEPATIC ENCEPHALOPATHY [None]
  - DRUG INTERACTION [None]
